FAERS Safety Report 24341123 (Version 1)
Quarter: 2024Q3

REPORT INFORMATION
  Report Type: Spontaneous
  Country: DE (occurrence: DE)
  Receive Date: 20240919
  Receipt Date: 20240919
  Transmission Date: 20241017
  Serious: Yes (Other)
  Sender: JOHNSON AND JOHNSON
  Company Number: None

PATIENT
  Sex: Female

DRUGS (9)
  1. RISPERIDONE [Suspect]
     Active Substance: RISPERIDONE
     Indication: Depression
     Dosage: 0.5-1.0 MG AND THE DRUG WAS DISCONTINUED AFTER 6 MONTHS
     Route: 065
     Dates: start: 200810, end: 2008
  2. RISPERIDONE [Suspect]
     Active Substance: RISPERIDONE
     Indication: Altered visual depth perception
  3. RISPERIDONE [Suspect]
     Active Substance: RISPERIDONE
     Indication: Illusion
  4. FLUOXETINE [Suspect]
     Active Substance: FLUOXETINE HYDROCHLORIDE
     Indication: Depression
     Dosage: 20 MG, 1X/DAY FOR 5 MONTHS REGIMEN DOSE UNIT: MILLIGRAM
     Route: 065
     Dates: start: 2006, end: 200809
  5. FLUOXETINE [Suspect]
     Active Substance: FLUOXETINE HYDROCHLORIDE
     Indication: Illusion
  6. SERTRALINE [Suspect]
     Active Substance: SERTRALINE HYDROCHLORIDE
     Indication: Depression
     Dosage: 200 MG, 1X/DAY FOR 13 MONTHS REGIMEN DOSE UNIT: MILLIGRAM
     Route: 065
     Dates: start: 2006, end: 200809
  7. SERTRALINE [Suspect]
     Active Substance: SERTRALINE HYDROCHLORIDE
     Indication: Illusion
  8. CITALOPRAM [Suspect]
     Active Substance: CITALOPRAM\CITALOPRAM HYDROBROMIDE
     Indication: Depression
     Dosage: 20-30 MG/DAY FOR 6 MONTHS
     Route: 065
     Dates: start: 2006, end: 200809
  9. CITALOPRAM [Suspect]
     Active Substance: CITALOPRAM\CITALOPRAM HYDROBROMIDE
     Indication: Illusion

REACTIONS (6)
  - Weight increased [Unknown]
  - Drug ineffective [Unknown]
  - Off label use [Unknown]
  - Product use in unapproved indication [Unknown]
  - Drug ineffective for unapproved indication [Unknown]
  - Drug abuse [Unknown]
